FAERS Safety Report 5563578-0 (Version None)
Quarter: 2007Q4

REPORT INFORMATION
  Report Type: 
  Country: None (occurrence: None)
  Receive Date: 20071214
  Receipt Date: 20071214
  Transmission Date: 20080405
  Serious: Yes (Hospitalization)
  Sender: FDA-Public Use
  Company Number: None

PATIENT
  Sex: Male
  Weight: 64 kg

DRUGS (9)
  1. BEVACIZUMAB (GENENTECH) [Suspect]
     Indication: GLIOBLASTOMA MULTIFORME
     Dosage: 10MG/KG IV Q 2 WEEKS
     Route: 042
     Dates: start: 20070724, end: 20071016
  2. TEMOZOLOMIDE [Suspect]
     Indication: GLIOBLASTOMA MULTIFORME
     Dosage: 50MG/M2 DAILY
     Dates: start: 20070724, end: 20071028
  3. LEXAPRO [Concomitant]
  4. KEPPRA [Concomitant]
  5. DEPAKOTE ER [Concomitant]
  6. LORAZEPAM [Concomitant]
  7. GABAPENTIN [Concomitant]
  8. DECADRON [Concomitant]
  9. PRILOSEC [Concomitant]

REACTIONS (4)
  - DEHYDRATION [None]
  - DIARRHOEA [None]
  - RENAL FAILURE ACUTE [None]
  - URINE OUTPUT DECREASED [None]
